FAERS Safety Report 16120516 (Version 1)
Quarter: 2019Q1

REPORT INFORMATION
  Report Type: Spontaneous
  Country: US (occurrence: US)
  Receive Date: 20190326
  Receipt Date: 20190326
  Transmission Date: 20190418
  Serious: No
  Sender: FDA-Public Use
  Company Number: US-ASTRAZENECA-2019SE35296

PATIENT
  Age: 28217 Day
  Sex: Female
  Weight: 54 kg

DRUGS (9)
  1. SPIRIVA [Concomitant]
     Active Substance: TIOTROPIUM BROMIDE MONOHYDRATE
     Indication: EMPHYSEMA
     Dosage: 2.5 UG/INHAL, TWO PUFFS, DAILY
     Route: 055
  2. SYMBICORT [Suspect]
     Active Substance: BUDESONIDE\FORMOTEROL FUMARATE DIHYDRATE
     Indication: CHRONIC OBSTRUCTIVE PULMONARY DISEASE
     Dosage: 1 PUFF TWICE DAILY FOR A MONTH AND THEN 1 PUFF DAILY FOR A MONTH AND THEN TO USE AS NEEDED
     Route: 055
  3. SYMBICORT [Suspect]
     Active Substance: BUDESONIDE\FORMOTEROL FUMARATE DIHYDRATE
     Indication: EMPHYSEMA
     Dosage: 160/4.5 MCGS, 2 PUFFS, TWICE DAILY
     Route: 055
  4. SYMBICORT [Suspect]
     Active Substance: BUDESONIDE\FORMOTEROL FUMARATE DIHYDRATE
     Indication: BRONCHITIS
     Dosage: 160/4.5 MCGS, 2 PUFFS, TWICE DAILY
     Route: 055
  5. SYMBICORT [Suspect]
     Active Substance: BUDESONIDE\FORMOTEROL FUMARATE DIHYDRATE
     Indication: BRONCHITIS
     Dosage: 1 PUFF TWICE DAILY FOR A MONTH AND THEN 1 PUFF DAILY FOR A MONTH AND THEN TO USE AS NEEDED
     Route: 055
  6. SPIRIVA [Concomitant]
     Active Substance: TIOTROPIUM BROMIDE MONOHYDRATE
     Indication: CHRONIC OBSTRUCTIVE PULMONARY DISEASE
     Dosage: 2.5 UG/INHAL, TWO PUFFS, DAILY
     Route: 055
  7. SYMBICORT [Suspect]
     Active Substance: BUDESONIDE\FORMOTEROL FUMARATE DIHYDRATE
     Indication: CHRONIC OBSTRUCTIVE PULMONARY DISEASE
     Dosage: 160/4.5 MCGS, 2 PUFFS, TWICE DAILY
     Route: 055
  8. SYMBICORT [Suspect]
     Active Substance: BUDESONIDE\FORMOTEROL FUMARATE DIHYDRATE
     Indication: EMPHYSEMA
     Dosage: 1 PUFF TWICE DAILY FOR A MONTH AND THEN 1 PUFF DAILY FOR A MONTH AND THEN TO USE AS NEEDED
     Route: 055
  9. SPIRIVA [Concomitant]
     Active Substance: TIOTROPIUM BROMIDE MONOHYDRATE
     Indication: BRONCHITIS
     Dosage: 2.5 UG/INHAL, TWO PUFFS, DAILY
     Route: 055

REACTIONS (10)
  - Off label use [Unknown]
  - Product use issue [Unknown]
  - Oropharyngeal pain [Unknown]
  - Aphonia [Unknown]
  - Fatigue [Unknown]
  - Vocal cord paralysis [Recovered/Resolved]
  - Respiratory tract infection [Unknown]
  - Wheezing [Unknown]
  - Sinus disorder [Unknown]
  - Intentional device misuse [Unknown]

NARRATIVE: CASE EVENT DATE: 20190218
